FAERS Safety Report 17228573 (Version 1)
Quarter: 2020Q1

REPORT INFORMATION
  Report Type: Spontaneous
  Country: SK (occurrence: SK)
  Receive Date: 20200103
  Receipt Date: 20200103
  Transmission Date: 20200409
  Serious: Yes (Other)
  Sender: FDA-Public Use
  Company Number: SK-GLAXOSMITHKLINE-SK2019236209

PATIENT
  Age: 63 Year
  Sex: Male

DRUGS (4)
  1. VOLTAREN (DICLOFENAC POTASSIUM) [Concomitant]
     Active Substance: DICLOFENAC POTASSIUM
     Indication: BACK PAIN
     Dosage: DURING THE NIGHT
     Route: 065
  2. FLIXOTIDE INHALER [Suspect]
     Active Substance: FLUTICASONE PROPIONATE
     Indication: SECRETION DISCHARGE
     Dosage: 1 DF, BID
     Route: 065
     Dates: start: 201908
  3. PANTOPRAZOLE [Concomitant]
     Active Substance: PANTOPRAZOLE
     Indication: PRODUCT USED FOR UNKNOWN INDICATION
     Dosage: 0-0-1
     Route: 065
  4. DESLORATADINE. [Concomitant]
     Active Substance: DESLORATADINE
     Indication: PRODUCT USED FOR UNKNOWN INDICATION
     Dosage: 5 MG1-0-0
     Route: 065

REACTIONS (1)
  - Pneumonia [Recovered/Resolved]

NARRATIVE: CASE EVENT DATE: 201908
